FAERS Safety Report 4909096-1 (Version None)
Quarter: 2006Q1

REPORT INFORMATION
  Report Type: 
  Country: None (occurrence: None)
  Receive Date: 20060213
  Receipt Date: 20060201
  Transmission Date: 20060701
  Serious: Yes (Life-Threatening)
  Sender: FDA-Public Use
  Company Number: GB-ABBOTT-06P-167-0323919-00

PATIENT
  Age: 55 Year
  Sex: Female

DRUGS (4)
  1. VALPROATE SODIUM [Suspect]
     Indication: EPILEPSY
     Dosage: 1500 MG OM AND 1000 MG OM
     Route: 048
     Dates: end: 20060111
  2. LEVETIRACETAM [Suspect]
     Indication: EPILEPSY
     Dosage: 750 MG OM, 500 MG ON
     Route: 048
  3. QUINIDINE HCL [Suspect]
     Indication: MUSCLE SPASMS
     Route: 048
     Dates: end: 20060111
  4. PARAMOL-118 [Concomitant]
     Indication: PAIN
     Dosage: 2 QDS
     Route: 048

REACTIONS (1)
  - NEUTROPENIC SEPSIS [None]
